FAERS Safety Report 4291690-5 (Version None)
Quarter: 2004Q1

REPORT INFORMATION
  Report Type: 
  Country: None (occurrence: None)
  Receive Date: 20040211
  Receipt Date: 20020726
  Transmission Date: 20041129
  Serious: No
  Sender: FDA-Public Use
  Company Number: US-GLAXOSMITHKLINE-A0376124A

PATIENT
  Age: 50 Year
  Sex: Female

DRUGS (2)
  1. IMITREX [Suspect]
     Indication: MIGRAINE
     Dosage: 6MG AS REQUIRED
     Route: 058
  2. PAIN MEDICATION [Concomitant]
     Indication: BACK PAIN

REACTIONS (5)
  - DRUG INEFFECTIVE [None]
  - INJECTION SITE BURNING [None]
  - INJECTION SITE HAEMORRHAGE [None]
  - PHARMACEUTICAL PRODUCT COMPLAINT [None]
  - SENSORY DISTURBANCE [None]
